FAERS Safety Report 4939190-0 (Version None)
Quarter: 2006Q1

REPORT INFORMATION
  Report Type: 
  Country: None (occurrence: None)
  Receive Date: 20060309
  Receipt Date: 20060309
  Transmission Date: 20060701
  Serious: Yes (Other)
  Sender: FDA-Public Use
  Company Number: None

PATIENT
  Age: 40 Year
  Sex: Female
  Weight: 63.5036 kg

DRUGS (1)
  1. MIRAPEX [Suspect]
     Indication: PARKINSON'S DISEASE
     Dosage: 1.5     4/DAY   PO
     Route: 048
     Dates: start: 20000811, end: 20050524

REACTIONS (8)
  - ABNORMAL BEHAVIOUR [None]
  - ANGER [None]
  - DEPRESSION [None]
  - MARITAL PROBLEM [None]
  - NIGHTMARE [None]
  - PARENT-CHILD PROBLEM [None]
  - PATHOLOGICAL GAMBLING [None]
  - THEFT [None]
